FAERS Safety Report 8827722 (Version 1)
Quarter: 2012Q4

REPORT INFORMATION
  Report Type: 
  Country: US (occurrence: US)
  Receive Date: 20121005
  Receipt Date: 20121005
  Transmission Date: 20130627
  Serious: Yes (Death, Other)
  Sender: FDA-Public Use
  Company Number: US-ROCHE-1133161

PATIENT
  Sex: Female

DRUGS (8)
  1. RITUXAN [Suspect]
     Indication: NON-HODGKIN^S LYMPHOMA
     Dosage: most recent dose of RITUXIMAB: 12/Jan/1998
     Route: 065
  2. FLUDARABINE [Concomitant]
  3. LEUKERAN [Concomitant]
  4. PREDNISONE [Concomitant]
  5. OXYCONTIN [Concomitant]
  6. SENOKOT [Concomitant]
  7. PERCOCET [Concomitant]
  8. ADVIL [Concomitant]

REACTIONS (14)
  - Death [Fatal]
  - Disease progression [Unknown]
  - Abdominal pain [Unknown]
  - Nausea [Unknown]
  - Lymphoma [Unknown]
  - Fatigue [Unknown]
  - Cough [Unknown]
  - Constipation [Unknown]
  - Pruritus [Unknown]
  - Neck mass [Unknown]
  - Necrosis [Unknown]
  - Lymphadenopathy [Unknown]
  - Back pain [Unknown]
  - Pyrexia [Unknown]
